FAERS Safety Report 14108531 (Version 1)
Quarter: 2017Q4

REPORT INFORMATION
  Report Type: Spontaneous
  Country: RO (occurrence: RO)
  Receive Date: 20171019
  Receipt Date: 20171019
  Transmission Date: 20180321
  Serious: Yes (Other)
  Sender: FDA-Public Use
  Company Number: RO-PFIZER INC-2017418757

PATIENT
  Age: 52 Year
  Sex: Male

DRUGS (1)
  1. XALKORI [Suspect]
     Active Substance: CRIZOTINIB
     Dosage: 250 MG, UNK
     Route: 048
     Dates: start: 201708

REACTIONS (5)
  - Alanine aminotransferase increased [Recovering/Resolving]
  - Seizure [Unknown]
  - Gamma-glutamyltransferase increased [Recovering/Resolving]
  - Neoplasm progression [Unknown]
  - Aspartate aminotransferase increased [Recovering/Resolving]

NARRATIVE: CASE EVENT DATE: 20171009
